FAERS Safety Report 23877890 (Version 1)
Quarter: 2024Q2

REPORT INFORMATION
  Report Type: Spontaneous
  Country: US (occurrence: US)
  Receive Date: 20240521
  Receipt Date: 20240521
  Transmission Date: 20240716
  Serious: No
  Sender: FDA-Public Use
  Company Number: US-CIPLA LTD.-2023US05683

PATIENT

DRUGS (6)
  1. ALBUTEROL [Suspect]
     Active Substance: ALBUTEROL
     Indication: Product used for unknown indication
     Dosage: 2 PUFFS, FREQUENCY (EVERY 4 HOURS OR AS NEEDED)
     Route: 065
     Dates: start: 202302
  2. ALBUTEROL [Suspect]
     Active Substance: ALBUTEROL
     Dosage: 2 PUFFS, FREQUENCY (EVERY 4 HOURS OR AS NEEDED)
     Route: 065
     Dates: start: 2023
  3. ALBUTEROL [Suspect]
     Active Substance: ALBUTEROL
     Dosage: 2 PUFFS, FREQUENCY (EVERY 4 HOURS OR AS NEEDED)
     Route: 065
     Dates: start: 2023
  4. ALBUTEROL [Suspect]
     Active Substance: ALBUTEROL
     Dosage: 2 PUFFS, FREQUENCY (EVERY 4 HOURS OR AS NEEDED)
     Route: 065
     Dates: start: 2023
  5. ALBUTEROL [Suspect]
     Active Substance: ALBUTEROL
     Dosage: 2 PUFFS,FREQUENCY (EVERY 4 HOURS OR AS NEEDED)
     Route: 065
     Dates: start: 2023
  6. ALBUTEROL [Suspect]
     Active Substance: ALBUTEROL
     Dosage: 2 PUFFS, FREQUENCY (EVERY 4 HOURS OR AS NEEDED)
     Route: 065
     Dates: start: 2023

REACTIONS (5)
  - Lung disorder [Not Recovered/Not Resolved]
  - Drug ineffective [Unknown]
  - Incorrect dose administered by device [Unknown]
  - Device malfunction [Unknown]
  - Device delivery system issue [Unknown]

NARRATIVE: CASE EVENT DATE: 20230101
